FAERS Safety Report 9836712 (Version 1)
Quarter: 2014Q1

REPORT INFORMATION
  Report Type: Spontaneous
  Country: NL (occurrence: NL)
  Receive Date: 20140123
  Receipt Date: 20140123
  Transmission Date: 20141002
  Serious: Yes (Hospitalization)
  Sender: FDA-Public Use
  Company Number: PHHY2014NL006909

PATIENT
  Age: 64 Year
  Sex: Female

DRUGS (3)
  1. CARBOPLATIN [Suspect]
     Indication: NON-SMALL CELL LUNG CANCER
  2. PACLITAXEL [Suspect]
     Indication: NON-SMALL CELL LUNG CANCER
  3. BEVACIZUMAB [Suspect]
     Indication: NON-SMALL CELL LUNG CANCER
     Dosage: 15 MG/KG, EVERY 3 WEEKS

REACTIONS (7)
  - Quality of life decreased [Recovering/Resolving]
  - Pulmonary cavitation [Unknown]
  - Non-small cell lung cancer [Unknown]
  - Peripheral sensory neuropathy [Unknown]
  - Bacterial infection [Unknown]
  - Anaemia [Unknown]
  - Drug effect incomplete [Unknown]
